FAERS Safety Report 11067526 (Version 1)
Quarter: 2015Q2

REPORT INFORMATION
  Report Type: Spontaneous
  Country: US (occurrence: US)
  Receive Date: 20150427
  Receipt Date: 20150427
  Transmission Date: 20150821
  Serious: No
  Sender: FDA-Public Use
  Company Number: US-TEVA-494120USA

PATIENT
  Sex: Male

DRUGS (1)
  1. CEFALEXIN [Suspect]
     Active Substance: CEPHALEXIN

REACTIONS (1)
  - Chromatopsia [Unknown]
